FAERS Safety Report 8583201-0 (Version None)
Quarter: 2012Q3

REPORT INFORMATION
  Report Type: 
  Country: None (occurrence: None)
  Receive Date: 20120727
  Receipt Date: 20120725
  Transmission Date: 20120928
  Serious: Yes (Hospitalization)
  Sender: FDA-Public Use
  Company Number: SP02079

PATIENT
  Age: 69 Year
  Sex: Male

DRUGS (4)
  1. BENIDIPINE HYDROCHLORIDE [Concomitant]
  2. VISICOL [Suspect]
     Dosage: 50 GM,ORAL
     Route: 048
     Dates: start: 20080924, end: 20080924
  3. VALSARTAN [Concomitant]
  4. FLUVASTATIN SODIUM [Concomitant]

REACTIONS (3)
  - ELECTROLYTE IMBALANCE [None]
  - HAEMORRHAGE [None]
  - RENAL FAILURE ACUTE [None]
